FAERS Safety Report 13815482 (Version 1)
Quarter: 2017Q3

REPORT INFORMATION
  Report Type: Spontaneous
  Country: US (occurrence: US)
  Receive Date: 20170731
  Receipt Date: 20170731
  Transmission Date: 20171127
  Serious: Yes (Other)
  Sender: FDA-Public Use
  Company Number: None

PATIENT
  Sex: Female
  Weight: 78.75 kg

DRUGS (9)
  1. OXYCODONE/ACETAMINOPHEN [Concomitant]
     Active Substance: ACETAMINOPHEN\OXYCODONE HYDROCHLORIDE
  2. COSENTYX [Suspect]
     Active Substance: SECUKINUMAB
     Indication: ANKYLOSING SPONDYLITIS
     Dosage: ?          QUANTITY:2 INJECTION(S);OTHER FREQUENCY:STARTER DOSE 150MG;?
     Route: 058
  3. MOVANTIK [Concomitant]
     Active Substance: NALOXEGOL OXALATE
  4. MEGARED - OMEGA-3 KRILL OIL [Concomitant]
  5. GLIMEPIRIDE. [Concomitant]
     Active Substance: GLIMEPIRIDE
  6. LISINOPRIL/HCTZ [Concomitant]
     Active Substance: HYDROCHLOROTHIAZIDE\LISINOPRIL
  7. METFORMIN HCL [Concomitant]
     Active Substance: METFORMIN HYDROCHLORIDE
  8. TIZANIDINE HCL [Concomitant]
     Active Substance: TIZANIDINE HYDROCHLORIDE
  9. COSENTYX [Suspect]
     Active Substance: SECUKINUMAB
     Indication: SYSTEMIC LUPUS ERYTHEMATOSUS
     Dosage: ?          QUANTITY:2 INJECTION(S);OTHER FREQUENCY:STARTER DOSE 150MG;?
     Route: 058

REACTIONS (3)
  - Dyspnoea [None]
  - Arthralgia [None]
  - Urticaria [None]

NARRATIVE: CASE EVENT DATE: 20170713
